FAERS Safety Report 20019285 (Version 1)
Quarter: 2021Q4

REPORT INFORMATION
  Report Type: Spontaneous
  Country: IL (occurrence: None)
  Receive Date: 20211101
  Receipt Date: 20211101
  Transmission Date: 20220303
  Serious: Yes (Other)
  Sender: FDA-Public Use
  Company Number: IL-ROCHE-2941919

PATIENT
  Age: 26 Year
  Sex: Female

DRUGS (1)
  1. OCREVUS [Suspect]
     Active Substance: OCRELIZUMAB
     Indication: Multiple sclerosis
     Route: 042
     Dates: start: 20210325

REACTIONS (9)
  - Multiple sclerosis [Unknown]
  - Back pain [Unknown]
  - Pelvic pain [Unknown]
  - Paraesthesia [Unknown]
  - Aphasia [Unknown]
  - Memory impairment [Unknown]
  - Pain in jaw [Unknown]
  - Bruxism [Unknown]
  - Oral pain [Unknown]
